FAERS Safety Report 5008687-X (Version None)
Quarter: 2006Q2

REPORT INFORMATION
  Report Type: 
  Country: None (occurrence: None)
  Receive Date: 20060523
  Receipt Date: 20060515
  Transmission Date: 20061013
  Serious: Yes (Hospitalization)
  Sender: FDA-Public Use
  Company Number: NL-GLAXOSMITHKLINE-B0424758A

PATIENT
  Age: 62 Year
  Sex: Female
  Weight: 85 kg

DRUGS (7)
  1. AMOXICILLIN + CLAVULANATE POTASSIUM [Suspect]
     Dosage: 4.8G PER DAY
     Dates: start: 20050921
  2. AMOXICILLIN TRIHYDRATE + POTASSIUM CLAVULANATE [Suspect]
     Route: 065
     Dates: start: 20050924
  3. CELLCEPT [Concomitant]
     Indication: DRUG USE FOR UNKNOWN INDICATION
     Dosage: 1000MG PER DAY
     Dates: start: 20050712
  4. AMARYL [Concomitant]
     Indication: DRUG USE FOR UNKNOWN INDICATION
     Dosage: 1MG PER DAY
     Route: 065
     Dates: start: 20050916, end: 20051008
  5. OMEPRAZOLE [Concomitant]
     Indication: DRUG USE FOR UNKNOWN INDICATION
     Dosage: 40MG PER DAY
     Dates: start: 20050322
  6. CALCI CHEW [Concomitant]
     Dates: start: 20030724
  7. URSOCHOL [Concomitant]
     Indication: DRUG USE FOR UNKNOWN INDICATION
     Dates: start: 20030301

REACTIONS (2)
  - JAUNDICE [None]
  - LICHENOID KERATOSIS [None]
